FAERS Safety Report 4487918-9 (Version None)
Quarter: 2004Q4

REPORT INFORMATION
  Report Type: 
  Country: None (occurrence: None)
  Receive Date: 20041026
  Receipt Date: 20041007
  Transmission Date: 20050328
  Serious: Yes (Hospitalization)
  Sender: FDA-Public Use
  Company Number: USA041080465

PATIENT
  Age: 14 Year
  Sex: Male
  Weight: 32 kg

DRUGS (6)
  1. STRATTERA [Suspect]
     Indication: ATTENTION DEFICIT/HYPERACTIVITY DISORDER
     Dosage: 60 MG/1 DAY
  2. PROZAC [Suspect]
     Indication: IMPULSE-CONTROL DISORDER
     Dosage: 20 MG/1 DAY
  3. ZYPREXA [Suspect]
     Indication: AGGRESSION
     Dosage: 5 MG/1 DAY
  4. BUSPAR [Concomitant]
  5. CLONIDINE HCL [Concomitant]
  6. RITALIN [Concomitant]

REACTIONS (2)
  - DRUG INTERACTION [None]
  - INTESTINAL OBSTRUCTION [None]
